FAERS Safety Report 9443418 (Version 2)
Quarter: 2013Q3

REPORT INFORMATION
  Report Type: Report from Study
  Country: US (occurrence: US)
  Receive Date: 20130806
  Receipt Date: 20130822
  Transmission Date: 20140515
  Serious: Yes (Other)
  Sender: FDA-Public Use
  Company Number: PHEH2013US015426

PATIENT
  Age: 81 Year
  Sex: Female
  Weight: 45 kg

DRUGS (7)
  1. AFINITOR [Suspect]
     Dosage: 10 MG, QD
     Route: 048
     Dates: start: 20121129, end: 20130715
  2. EXEMESTANE [Concomitant]
  3. TOPROL [Concomitant]
  4. LASIX [Concomitant]
  5. COUMADINE [Concomitant]
  6. BUSPAR [Concomitant]
  7. SYNTHROID [Concomitant]

REACTIONS (3)
  - Hepatic mass [Not Recovered/Not Resolved]
  - Disease progression [Unknown]
  - Drug ineffective [Unknown]
